FAERS Safety Report 19305685 (Version 1)
Quarter: 2021Q2

REPORT INFORMATION
  Report Type: Spontaneous
  Country: IT (occurrence: IT)
  Receive Date: 20210526
  Receipt Date: 20210526
  Transmission Date: 20210717
  Serious: Yes (Other)
  Sender: FDA-Public Use
  Company Number: IT-TEVA-2021-IT-1914477

PATIENT
  Age: 53 Year
  Sex: Male

DRUGS (1)
  1. DICLOFENAC [Suspect]
     Active Substance: DICLOFENAC
     Indication: PAIN
     Dosage: 1DOSAGEFORM
     Route: 048
     Dates: start: 20210126, end: 20210126

REACTIONS (6)
  - Face oedema [Recovering/Resolving]
  - Vomiting [Recovering/Resolving]
  - Paraesthesia [Recovering/Resolving]
  - Abdominal pain upper [Recovering/Resolving]
  - Oropharyngeal discomfort [Recovering/Resolving]
  - Rhinitis [Recovering/Resolving]

NARRATIVE: CASE EVENT DATE: 20210126
